FAERS Safety Report 18646684 (Version 1)
Quarter: 2020Q4

REPORT INFORMATION
  Report Type: Other
  Country: US (occurrence: US)
  Receive Date: 20201221
  Receipt Date: 20201221
  Transmission Date: 20210114
  Serious: Yes (Hospitalization)
  Sender: FDA-Public Use
  Company Number: US-ACORDA-ACO_167068_2020

PATIENT
  Sex: Male

DRUGS (1)
  1. INBRIJA [Suspect]
     Active Substance: LEVODOPA
     Indication: PARKINSON^S DISEASE
     Dosage: 84 MILLIGRAM, PRN, 10 AM, 3 PM, DO NOT EXCEED 3 DOSES PER DAY
     Dates: start: 20200330

REACTIONS (3)
  - Ill-defined disorder [Not Recovered/Not Resolved]
  - Pneumonia [Unknown]
  - Condition aggravated [Not Recovered/Not Resolved]
